FAERS Safety Report 23261620 (Version 1)
Quarter: 2023Q4

REPORT INFORMATION
  Report Type: Spontaneous
  Country: ES (occurrence: ES)
  Receive Date: 20231205
  Receipt Date: 20231205
  Transmission Date: 20240110
  Serious: Yes (Death, Other)
  Sender: FDA-Public Use
  Company Number: ES-AEMPS-1453062

PATIENT
  Age: 80 Year
  Sex: Male
  Weight: 77 kg

DRUGS (1)
  1. DOCETAXEL [Suspect]
     Active Substance: DOCETAXEL\DOCETAXEL ANHYDROUS
     Indication: Hormone-refractory prostate cancer
     Dosage: UNK (21 D?AS0
     Route: 042
     Dates: start: 20230626, end: 20230928

REACTIONS (1)
  - Pneumonia [Fatal]

NARRATIVE: CASE EVENT DATE: 20231014
